FAERS Safety Report 16048802 (Version 2)
Quarter: 2019Q1

REPORT INFORMATION
  Report Type: Spontaneous
  Country: NL (occurrence: NL)
  Receive Date: 20190307
  Receipt Date: 20190319
  Transmission Date: 20190418
  Serious: Yes (Hospitalization)
  Sender: FDA-Public Use
  Company Number: NL-PFIZER INC-2019093780

PATIENT
  Age: 83 Year
  Sex: Female

DRUGS (22)
  1. AMLODIPINE [Concomitant]
     Active Substance: AMLODIPINE BESYLATE
     Dosage: 10 MG, 1X/DAY
     Route: 048
  2. GABAPENTINE [Concomitant]
     Active Substance: GABAPENTIN
     Dosage: 300 MG, 3X/DAY
     Route: 048
  3. CALCIUM CARBONATE W/COLECALCIFEROL [Concomitant]
     Active Substance: CALCIUM CARBONATE\CHOLECALCIFEROL
     Dosage: 1 DF 500 MG CALCIUM (1.25G/800IU), 1X/DAY
     Route: 048
  4. FUROSEMIDE. [Concomitant]
     Active Substance: FUROSEMIDE
     Dosage: UNK
     Route: 048
  5. ISOSORBIDEMONONITRAAT [Concomitant]
     Dosage: 50 MG, 1X/DAY
     Route: 048
  6. OCTREOTIDE. [Concomitant]
     Active Substance: OCTREOTIDE
     Dosage: UNK
  7. SOMAVERT [Suspect]
     Active Substance: PEGVISOMANT
     Indication: ACROMEGALY
     Dosage: 60 MG, 2X/WEEK
     Route: 058
     Dates: start: 20180705
  8. DIMETHYLSULFOXYDE [Concomitant]
     Dosage: UNK
     Route: 003
  9. NITROGLYCERINE [Concomitant]
     Active Substance: NITROGLYCERIN
     Dosage: 0.4 MG, 1-4X/DAY
     Route: 060
  10. IPRATROPIUM/SALBUTAMOL [Concomitant]
     Dosage: 2.5 ML, 4X/DAY (1 MG SALBUTAMOL;0.2 MG IPRATROPIUM BROMIDE / ML
  11. ACETYLSALICYLZUUR [Concomitant]
     Active Substance: ASPIRIN
     Dosage: UNK
     Route: 048
  12. ALFACALCIDOL [Concomitant]
     Active Substance: ALFACALCIDOL
     Dosage: 0.50 UG (TWO CAPSULES), 1X/DAY
     Route: 048
  13. INSULINE GLARGINE [Concomitant]
     Active Substance: INSULIN GLARGINE
     Dosage: UNK
  14. SODIUM HYDROCARBONATE [Concomitant]
     Active Substance: SODIUM BICARBONATE
     Dosage: 1000 MG, 2X/DAY
     Route: 048
  15. PANTOPRAZOL [PANTOPRAZOLE] [Concomitant]
     Dosage: 40 MG, 1X/DAY
     Route: 048
  16. ACENOCOUMAROL [Concomitant]
     Active Substance: ACENOCOUMAROL
     Dosage: UNK
     Route: 048
  17. NATRIUMCHLORIDE [Concomitant]
     Active Substance: SODIUM CHLORIDE
     Dosage: 2 ML, 2X/DAY
  18. HYDROCHLOORTHIAZIDE [Concomitant]
     Active Substance: HYDROCHLOROTHIAZIDE
     Dosage: UNK
     Route: 048
  19. ISOSORBIDEMONONITRAAT [Concomitant]
     Dosage: 100 MG, 1X/DAY
     Route: 048
  20. METOPROLOL. [Concomitant]
     Active Substance: METOPROLOL
     Dosage: 50 MG, 2X/DAY
     Route: 048
  21. PRAVASTATINE [PRAVASTATIN] [Concomitant]
     Active Substance: PRAVASTATIN
     Dosage: UNK
     Route: 048
  22. ZOLPIDEM [Concomitant]
     Active Substance: ZOLPIDEM\ZOLPIDEM TARTRATE
     Dosage: 10 MG, 1X/DAY
     Route: 048

REACTIONS (6)
  - Fall [Unknown]
  - Pneumonia [Recovering/Resolving]
  - Product use issue [Unknown]
  - Pain [Unknown]
  - Mobility decreased [Unknown]
  - Muscle contusion [Unknown]

NARRATIVE: CASE EVENT DATE: 20180705
